FAERS Safety Report 13963950 (Version 1)
Quarter: 2017Q3

REPORT INFORMATION
  Report Type: Spontaneous
  Country: US (occurrence: US)
  Receive Date: 20170913
  Receipt Date: 20170913
  Transmission Date: 20171128
  Serious: Yes (Hospitalization)
  Sender: FDA-Public Use
  Company Number: US-THE MEDICINES COMPANY-US-MDCO-17-00434

PATIENT

DRUGS (1)
  1. ORBACTIV [Suspect]
     Active Substance: ORITAVANCIN
     Indication: WOUND INFECTION
     Dosage: NOT REPORTED
     Dates: start: 20170906

REACTIONS (2)
  - Cardiac failure [Unknown]
  - Hypertension [Unknown]

NARRATIVE: CASE EVENT DATE: 201709
